FAERS Safety Report 6204202-3 (Version None)
Quarter: 2009Q2

REPORT INFORMATION
  Report Type: 
  Country: None (occurrence: None)
  Receive Date: 20090526
  Receipt Date: 20090526
  Transmission Date: 20091009
  Serious: Yes (Other)
  Sender: FDA-Public Use
  Company Number: None

PATIENT
  Age: 30 Year
  Sex: Female
  Weight: 83.4619 kg

DRUGS (1)
  1. ZOLPIDEM [Suspect]
     Indication: SLEEP DISORDER
     Dosage: 1 TABLET -10MG- 1 A DAY AT BEDTOME PO
     Route: 048
     Dates: start: 20090512, end: 20090514

REACTIONS (17)
  - ABNORMAL BEHAVIOUR [None]
  - ABNORMAL DREAMS [None]
  - AMNESIA [None]
  - ANXIETY [None]
  - CONFUSIONAL STATE [None]
  - COORDINATION ABNORMAL [None]
  - CRIME [None]
  - DISORIENTATION [None]
  - FEELING ABNORMAL [None]
  - INCOHERENT [None]
  - MUSCLE TWITCHING [None]
  - NERVOUS SYSTEM DISORDER [None]
  - PANIC DISORDER [None]
  - PSYCHOMOTOR SKILLS IMPAIRED [None]
  - SOMNAMBULISM [None]
  - SPEECH DISORDER [None]
  - THINKING ABNORMAL [None]
